FAERS Safety Report 17665122 (Version 1)
Quarter: 2020Q2

REPORT INFORMATION
  Report Type: Spontaneous
  Country: US (occurrence: US)
  Receive Date: 20200412
  Receipt Date: 20200412
  Transmission Date: 20200713
  Serious: Yes (Hospitalization, Other)
  Sender: FDA-Public Use
  Company Number: None

PATIENT
  Age: 28 Year
  Sex: Female
  Weight: 58.5 kg

DRUGS (1)
  1. VAGELIXIR FEMMAGIC [HERBALS] [Suspect]
     Active Substance: HERBALS
     Indication: INFECTION
     Dosage: ?          QUANTITY:4 SUPPOSITORY(IES);?
     Route: 067

REACTIONS (6)
  - Product formulation issue [None]
  - Ovarian disorder [None]
  - Hospitalisation [None]
  - Uterine disorder [None]
  - Product quality issue [None]
  - Injury [None]

NARRATIVE: CASE EVENT DATE: 20200204
